FAERS Safety Report 8538676-X (Version None)
Quarter: 2012Q3

REPORT INFORMATION
  Report Type: 
  Country: None (occurrence: None)
  Receive Date: 20120726
  Receipt Date: 20120716
  Transmission Date: 20120928
  Serious: Yes (Hospitalization)
  Sender: FDA-Public Use
  Company Number: US-BAYER-2012-072355

PATIENT
  Age: 17 Year
  Sex: Female

DRUGS (6)
  1. ALLEGRA [Concomitant]
     Indication: HYPERSENSITIVITY
     Dosage: 1 TABLET EVERY DAY AS NEEDED
     Route: 048
  2. PULMICORT [Concomitant]
     Dosage: UNK UNK, PRN
     Route: 055
  3. VENTOLIN [Concomitant]
     Indication: ASTHMA
     Dosage: 2 PUFFS AS NEEDED
     Route: 055
  4. LEVAQUIN [Concomitant]
     Indication: URINARY TRACT INFECTION
  5. CEPHALEXIN [Concomitant]
     Indication: URINARY TRACT INFECTION
  6. YAZ [Suspect]

REACTIONS (1)
  - PULMONARY EMBOLISM [None]
